FAERS Safety Report 6771749-0 (Version None)
Quarter: 2010Q2

REPORT INFORMATION
  Report Type: 
  Country: None (occurrence: None)
  Receive Date: 20100616
  Receipt Date: 20100330
  Transmission Date: 20101027
  Serious: No
  Sender: FDA-Public Use
  Company Number: US-ASTRAZENECA-2009UW07980

PATIENT
  Age: 944 Month
  Sex: Female
  Weight: 68 kg

DRUGS (3)
  1. ATACAND [Suspect]
     Indication: BLOOD PRESSURE
     Route: 048
  2. ATACAND [Suspect]
     Route: 048
  3. UNSPECIFIED MEDICATION [Concomitant]

REACTIONS (5)
  - BLOOD PRESSURE INCREASED [None]
  - DIZZINESS [None]
  - DRUG INTOLERANCE [None]
  - HEADACHE [None]
  - HYPOTENSION [None]
